FAERS Safety Report 4332470-1 (Version None)
Quarter: 2004Q2

REPORT INFORMATION
  Report Type: 
  Country: None (occurrence: None)
  Receive Date: 20040401
  Receipt Date: 20040329
  Transmission Date: 20050107
  Serious: Yes (Life-Threatening, Hospitalization, Other)
  Sender: FDA-Public Use
  Company Number: SEWYE673130MAR04

PATIENT
  Age: 26 Year
  Sex: Female

DRUGS (10)
  1. RAPAMUNE [Suspect]
     Indication: RENAL TRANSPLANT
     Dosage: SEE IMAGE
     Route: 048
     Dates: start: 20031010, end: 20031011
  2. RAPAMUNE [Suspect]
     Indication: RENAL TRANSPLANT
     Dosage: SEE IMAGE
     Route: 048
     Dates: start: 20031012, end: 20031202
  3. PREDNISOLON (PREDNISOLONE, 0) [Suspect]
     Dosage: 10 MG 1X PER 1 DAY; ORAL
     Route: 048
     Dates: start: 20020101
  4. NEXIUM [Concomitant]
  5. MERCILON (DESOGESTREL /ETHINYLESTRADIOL) [Concomitant]
  6. CELLCEPT [Concomitant]
  7. NORVASC [Concomitant]
  8. ETALPHA (ALFACALCIDOL) [Concomitant]
  9. ZOVIR (ACICLOVIR) [Concomitant]
  10. NEORECORMON (EPOETIN BETA) [Concomitant]

REACTIONS (5)
  - ANAEMIA [None]
  - BLOOD CHOLESTEROL INCREASED [None]
  - BLOOD TRIGLYCERIDES INCREASED [None]
  - CONDITION AGGRAVATED [None]
  - HYPERLIPIDAEMIA [None]
